FAERS Safety Report 9512387 (Version 1)
Quarter: 2013Q1

REPORT INFORMATION
  Report Type: Spontaneous
  Country: US (occurrence: None)
  Receive Date: 20130305
  Receipt Date: 20130305
  Transmission Date: 20140127
  Serious: Yes (Other)
  Sender: FDA-Public Use
  Company Number: 163-21880-12102291

PATIENT
  Age: 62 Year
  Sex: Female
  Weight: 55.79 kg

DRUGS (8)
  1. REVLIMID [Suspect]
     Indication: PLASMA CELL MYELOMA
     Dosage: 28 IN 28 D
     Route: 048
     Dates: start: 20090730
  2. ASPIRIN (ACETYLSALICYLIC ACID) (UNKNOWN) (ACETYLSALICYLIC ACID) [Concomitant]
  3. VITAMIN D (ERGOCALCFIEROL) (UNKNOWN) [Concomitant]
  4. OMEGA 3 (FISH OIL) (UNKNOWN) [Concomitant]
  5. METOPROLOL (METOPROLOL) (UNKNOWN) [Concomitant]
  6. ACYCLOVIR (ACICLOVIR) (UNKNOWN) [Concomitant]
  7. MULTIVITAMINS (MULTIVITAMINS) (UNKNOWN) [Concomitant]
  8. GLUCOSAMINE (GLUCOSAMINE) (UNKNOWN) [Concomitant]

REACTIONS (2)
  - Impaired healing [None]
  - Dry skin [None]
